FAERS Safety Report 7202755-X (Version None)
Quarter: 2010Q4

REPORT INFORMATION
  Report Type: 
  Country: None (occurrence: None)
  Receive Date: 20101229
  Receipt Date: 20101227
  Transmission Date: 20110411
  Serious: Yes (Death, Hospitalization, Other)
  Sender: FDA-Public Use
  Company Number: JP-BAYER-200915135BYL

PATIENT
  Age: 71 Year
  Sex: Male
  Weight: 74 kg

DRUGS (20)
  1. NEXAVAR [Suspect]
     Indication: RENAL CELL CARCINOMA
     Dosage: 800 MG (DAILY DOSE), , ORAL
     Route: 048
     Dates: start: 20090513, end: 20090529
  2. NEXAVAR [Suspect]
     Dosage: 400 MG (DAILY DOSE), , ORAL
     Route: 048
     Dates: start: 20090606, end: 20090610
  3. NEXAVAR [Suspect]
     Dosage: 800 MG (DAILY DOSE), , ORAL
     Route: 048
     Dates: start: 20090611, end: 20091124
  4. NEXAVAR [Suspect]
     Dosage: 400 MG (DAILY DOSE), , ORAL
     Route: 048
     Dates: start: 20091124, end: 20091231
  5. LOXONIN [Concomitant]
     Indication: PALLIATIVE CARE
     Dosage: 3 DF, QD
     Route: 048
     Dates: start: 20090509
  6. MUCOSTA [Concomitant]
     Dosage: 30 MG, QD
     Route: 048
     Dates: start: 20090509
  7. FLIVAS [Concomitant]
     Dosage: 25 MG, QD
     Route: 048
     Dates: start: 20090509
  8. MICARDIS [Concomitant]
     Dosage: 40 MG, QD
     Route: 048
     Dates: start: 20090509
  9. AMLODIPINE [Concomitant]
     Dosage: 5 MG, QD
     Route: 048
     Dates: start: 20090509
  10. OMEPRAL [Concomitant]
     Dosage: 20 MG, QD
     Route: 048
     Dates: start: 20090509
  11. CRESTOR [Concomitant]
     Dosage: 2.5 MG, QD
     Route: 048
     Dates: start: 20090509
  12. PLAVIX [Concomitant]
     Dosage: 75 MG, QD
     Route: 048
     Dates: start: 20090509
  13. PURSENNID [Concomitant]
     Dosage: 2 DF, QD
     Route: 048
     Dates: start: 20090510
  14. VOLTAREN-XR [Concomitant]
     Indication: PALLIATIVE CARE
     Dosage: 75 MG, QD
     Route: 048
     Dates: start: 20090527, end: 20090611
  15. TAKEPRON [Concomitant]
     Dosage: 15 MG, QD
     Route: 048
     Dates: start: 20090528
  16. LASIX [Concomitant]
     Dosage: 20 MG, QD
     Route: 048
     Dates: start: 20090901
  17. ROCEPHIN [Concomitant]
     Route: 042
     Dates: start: 20091201, end: 20091203
  18. ITRIZOLE [Concomitant]
     Dosage: 150 MG (DAILY DOSE), , ORAL
     Route: 048
     Dates: start: 20091204, end: 20091210
  19. OMEGACIN [Concomitant]
     Route: 042
     Dates: start: 20091204, end: 20091210
  20. EURODIN [Concomitant]
     Dosage: 2 MG (DAILY DOSE), , ORAL
     Route: 048
     Dates: start: 20091212

REACTIONS (7)
  - HYPERTENSION [None]
  - HYPOTHYROIDISM [None]
  - IMPAIRED HEALING [None]
  - INSOMNIA [None]
  - PALMAR-PLANTAR ERYTHRODYSAESTHESIA SYNDROME [None]
  - PLEURAL EFFUSION [None]
  - RENAL CELL CARCINOMA [None]
